FAERS Safety Report 9840823 (Version 1)
Quarter: 2013Q4

REPORT INFORMATION
  Report Type: Spontaneous
  Country: US (occurrence: None)
  Receive Date: 20131211
  Receipt Date: 20131211
  Transmission Date: 20140711
  Serious: Yes (Other)
  Sender: FDA-Public Use
  Company Number: ALL1-2012-01487

PATIENT
  Age: 63 Year
  Sex: Female

DRUGS (1)
  1. LIALDA [Suspect]
     Indication: PRODUCT USED FOR UNKNOWN INDICATION
     Route: 048

REACTIONS (3)
  - White blood cell count decreased [None]
  - Alopecia [None]
  - Acne [None]
